FAERS Safety Report 9733204 (Version 1)
Quarter: 2013Q4

REPORT INFORMATION
  Report Type: Report from Study
  Country: AR (occurrence: AR)
  Receive Date: 20131205
  Receipt Date: 20131205
  Transmission Date: 20140711
  Serious: Yes (Other)
  Sender: FDA-Public Use
  Company Number: PHHY2013AR141903

PATIENT
  Sex: Male

DRUGS (1)
  1. DIOVAN [Suspect]
     Indication: ARTERIAL DISORDER
     Dosage: 160 MG, DAILY
     Route: 048
     Dates: start: 2009

REACTIONS (1)
  - Diabetes mellitus [Unknown]
